FAERS Safety Report 10361118 (Version 2)
Quarter: 2014Q3

REPORT INFORMATION
  Report Type: Spontaneous
  Country: CA (occurrence: None)
  Receive Date: 20140731
  Receipt Date: 20140825
  Transmission Date: 20150326
  Serious: Yes (Other)
  Sender: FDA-Public Use
  Company Number: CA-016099

PATIENT
  Age: 60 Year
  Sex: Male

DRUGS (4)
  1. BABY ASPIRIN [Concomitant]
     Active Substance: ASPIRIN
  2. FIRMAGON [Suspect]
     Active Substance: DEGARELIX ACETATE
     Indication: PROSTATE CANCER
     Dosage: 1X/MONTH,
     Route: 058
     Dates: start: 20140314
  3. HORMONES [Concomitant]
     Active Substance: UNSPECIFIED INGREDIENT
  4. VITAMIN D SUPPORT [Concomitant]

REACTIONS (3)
  - Prostatic specific antigen abnormal [None]
  - Metastases to liver [None]
  - Neutropenia [None]

NARRATIVE: CASE EVENT DATE: 20140612
